FAERS Safety Report 13530760 (Version 3)
Quarter: 2017Q2

REPORT INFORMATION
  Report Type: Report from Study
  Country: US (occurrence: US)
  Receive Date: 20170510
  Receipt Date: 20170621
  Transmission Date: 20170830
  Serious: Yes (Hospitalization, Other)
  Sender: FDA-Public Use
  Company Number: US-GILEAD-2017-0271951

PATIENT
  Age: 63 Year
  Sex: Female

DRUGS (23)
  1. LANSOPRAZOL [Concomitant]
     Active Substance: LANSOPRAZOLE
  2. LEFLUNOMIDE. [Concomitant]
     Active Substance: LEFLUNOMIDE
  3. HUMIRA [Concomitant]
     Active Substance: ADALIMUMAB
  4. CELEBREX [Concomitant]
     Active Substance: CELECOXIB
  5. SILDENAFIL. [Concomitant]
     Active Substance: SILDENAFIL
  6. GABAPENTIN. [Concomitant]
     Active Substance: GABAPENTIN
  7. REGLAN [Concomitant]
     Active Substance: METOCLOPRAMIDE HYDROCHLORIDE
  8. AMITRIPTYLINE [Concomitant]
     Active Substance: AMITRIPTYLINE
  9. SYNTHROID [Concomitant]
     Active Substance: LEVOTHYROXINE SODIUM
  10. MECLIZINE [Concomitant]
     Active Substance: MECLIZINE HYDROCHLORIDE
  11. ONDANSETRON [Concomitant]
     Active Substance: ONDANSETRON
  12. AMBRISENTAN [Suspect]
     Active Substance: AMBRISENTAN
     Indication: PULMONARY HYPERTENSION
     Dosage: 10 MG, QD
     Route: 065
     Dates: start: 20151120
  13. COLCRYS [Concomitant]
     Active Substance: COLCHICINE
  14. ADVAIR HFA [Concomitant]
     Active Substance: FLUTICASONE PROPIONATE\SALMETEROL XINAFOATE
  15. SPIRONOLACTONE. [Concomitant]
     Active Substance: SPIRONOLACTONE
  16. ALLOPURINOL. [Concomitant]
     Active Substance: ALLOPURINOL
  17. AMITIZA [Concomitant]
     Active Substance: LUBIPROSTONE
  18. NOVOLOG [Concomitant]
     Active Substance: INSULIN ASPART
  19. TYVASO [Concomitant]
     Active Substance: TREPROSTINIL
  20. TORSEMIDE. [Concomitant]
     Active Substance: TORSEMIDE
  21. PRAVASTATIN. [Concomitant]
     Active Substance: PRAVASTATIN
  22. TRAMADOL. [Concomitant]
     Active Substance: TRAMADOL
  23. SINGULAIR [Concomitant]
     Active Substance: MONTELUKAST SODIUM

REACTIONS (7)
  - Fluid overload [Unknown]
  - Diabetes mellitus inadequate control [Unknown]
  - Limb injury [Unknown]
  - Peripheral swelling [Unknown]
  - Dyspnoea [Unknown]
  - Swelling [Recovered/Resolved]
  - Foot fracture [Unknown]

NARRATIVE: CASE EVENT DATE: 20170507
